FAERS Safety Report 24526511 (Version 1)
Quarter: 2024Q4

REPORT INFORMATION
  Report Type: Spontaneous
  Country: TR (occurrence: TR)
  Receive Date: 20241021
  Receipt Date: 20241021
  Transmission Date: 20250115
  Serious: No
  Sender: ROCHE
  Company Number: TR-ROCHE-3441911

PATIENT
  Age: 47 Year
  Sex: Female

DRUGS (1)
  1. VEMURAFENIB [Suspect]
     Active Substance: VEMURAFENIB
     Indication: BRAF gene mutation
     Route: 065

REACTIONS (2)
  - Rash [Recovering/Resolving]
  - Alopecia [Recovering/Resolving]
